FAERS Safety Report 5200432-8 (Version None)
Quarter: 2006Q4

REPORT INFORMATION
  Report Type: 
  Country: None (occurrence: None)
  Receive Date: 20061016
  Receipt Date: 20060727
  Transmission Date: 20070319
  Serious: No
  Sender: FDA-Public Use
  Company Number: 2006SP002815

PATIENT
  Age: 49 Year
  Sex: Female
  Weight: 118.3888 kg

DRUGS (6)
  1. LUNESTA [Suspect]
     Indication: INSOMNIA
     Dosage: 3MG; ORAL
     Route: 048
     Dates: start: 20060726
  2. SINGULAIR [Concomitant]
  3. LORATADINE [Concomitant]
  4. ADVAIR DISKUS 100/50 [Concomitant]
  5. ALBUTEROL [Concomitant]
  6. DIPHENHYDRAMINE HYDROCHLORIDE [Concomitant]

REACTIONS (2)
  - DYSGEUSIA [None]
  - INITIAL INSOMNIA [None]
